FAERS Safety Report 12252816 (Version 2)
Quarter: 2016Q2

REPORT INFORMATION
  Report Type: Report from Study
  Country: US (occurrence: US)
  Receive Date: 20160411
  Receipt Date: 20160505
  Transmission Date: 20160815
  Serious: Yes (Death, Other)
  Sender: FDA-Public Use
  Company Number: US-PFIZER INC-2016198224

PATIENT
  Age: 29 Year
  Sex: Female

DRUGS (2)
  1. TETRACYCLINE HCL [Suspect]
     Active Substance: TETRACYCLINE HYDROCHLORIDE
     Indication: PYELONEPHRITIS
     Dosage: HIGH DOSE (AVERAGING 3.6 GM. PER DAY (RANGE, 1.7 TO 5.0 GM))
     Route: 042
  2. CHLORAMPHENICOL [Concomitant]
     Active Substance: CHLORAMPHENICOL
     Indication: PYELONEPHRITIS
     Dosage: 3.4 G, DAILY

REACTIONS (2)
  - Stillbirth [Unknown]
  - Liver disorder [Fatal]
